FAERS Safety Report 25899756 (Version 1)
Quarter: 2025Q4

REPORT INFORMATION
  Report Type: Report from Study
  Country: US (occurrence: US)
  Receive Date: 20251009
  Receipt Date: 20251009
  Transmission Date: 20260118
  Serious: Yes (Hospitalization, Other)
  Sender: JOHNSON AND JOHNSON
  Company Number: US-JNJFOC-20251001904

PATIENT
  Age: 36 Year
  Sex: Female

DRUGS (3)
  1. SPRAVATO [Suspect]
     Active Substance: ESKETAMINE
     Indication: Depression
     Dosage: ^84 MG, 13 TOTAL DOSES^
     Route: 045
     Dates: start: 20250725, end: 20250923
  2. SPRAVATO [Suspect]
     Active Substance: ESKETAMINE
     Dosage: ^84 MG, MOST RECENT DOSE ADMINISTERED^
     Route: 045
     Dates: start: 20250930, end: 20250930
  3. BUPRENORPHINE [Concomitant]
     Active Substance: BUPRENORPHINE
     Indication: Product used for unknown indication

REACTIONS (2)
  - Fall [Unknown]
  - Skin laceration [Unknown]

NARRATIVE: CASE EVENT DATE: 20250930
